FAERS Safety Report 10488429 (Version 1)
Quarter: 2014Q3

REPORT INFORMATION
  Report Type: Spontaneous
  Country: PH (occurrence: None)
  Receive Date: 20140919
  Receipt Date: 20140919
  Transmission Date: 20150326
  Serious: Yes (Other)
  Sender: FDA-Public Use
  Company Number: PH-145582

PATIENT
  Age: 0 Day
  Sex: Male

DRUGS (1)
  1. WINRHO [Suspect]
     Active Substance: HUMAN RHO(D) IMMUNE GLOBULIN
     Indication: OFF LABEL USE
     Route: 030
     Dates: start: 20140810, end: 20140810

REACTIONS (9)
  - Accidental overdose [None]
  - Coombs direct test positive [None]
  - Reticulocyte count increased [None]
  - Incorrect dose administered [None]
  - Drug prescribing error [None]
  - Blood bilirubin increased [None]
  - Haemoglobin decreased [None]
  - Jaundice neonatal [None]
  - Coombs indirect test positive [None]

NARRATIVE: CASE EVENT DATE: 20140810
